FAERS Safety Report 8585993-3 (Version None)
Quarter: 2012Q3

REPORT INFORMATION
  Report Type: 
  Country: None (occurrence: None)
  Receive Date: 20120802
  Receipt Date: 20120802
  Transmission Date: 20120928
  Serious: Yes (Hospitalization)
  Sender: FDA-Public Use
  Company Number: None

PATIENT
  Sex: Male
  Weight: 61.3 kg

DRUGS (1)
  1. CISPLATIN [Suspect]
     Dosage: 380 MG

REACTIONS (3)
  - LEUKOPENIA [None]
  - PNEUMONIA ASPIRATION [None]
  - SEPSIS [None]
